FAERS Safety Report 6676627-3 (Version None)
Quarter: 2010Q2

REPORT INFORMATION
  Report Type: 
  Country: None (occurrence: None)
  Receive Date: 20100412
  Receipt Date: 20100402
  Transmission Date: 20101027
  Serious: Yes (Hospitalization)
  Sender: FDA-Public Use
  Company Number: PHHY2009FR47139

PATIENT
  Age: 30 Year
  Sex: Female

DRUGS (2)
  1. TEGRETOL [Suspect]
     Dosage: 400 MG, UNK
     Dates: start: 20090528, end: 20090804
  2. LAMICTAL [Concomitant]
     Dosage: 100 MG, UNK
     Dates: start: 20070101, end: 20090804

REACTIONS (9)
  - AGRANULOCYTOSIS [None]
  - CYTOLYTIC HEPATITIS [None]
  - DRUG RASH WITH EOSINOPHILIA AND SYSTEMIC SYMPTOMS [None]
  - INTERSTITIAL LUNG DISEASE [None]
  - LEUKOCYTOSIS [None]
  - PYREXIA [None]
  - SKIN EXFOLIATION [None]
  - THROMBOCYTOSIS [None]
  - TOXOPLASMOSIS [None]
